FAERS Safety Report 5869602-X (Version None)
Quarter: 2008Q3

REPORT INFORMATION
  Report Type: 
  Country: None (occurrence: None)
  Receive Date: 20080904
  Receipt Date: 20070827
  Transmission Date: 20090109
  Serious: No
  Sender: FDA-Public Use
  Company Number: US-KINGPHARMUSA00001-K200701099

PATIENT

DRUGS (5)
  1. CYTOMEL [Suspect]
     Dosage: 50 MCG, BID
     Route: 048
  2. METHYLPHENIDATE HCL [Concomitant]
     Dosage: 40 MG, BID
     Route: 048
  3. BUPROPION SR [Concomitant]
     Dosage: 450 MG, QD
     Route: 048
  4. PROTONIX  /01263201/ [Concomitant]
     Dosage: 40 MG, QD
     Route: 048
  5. BACTRIM [Concomitant]
     Route: 048

REACTIONS (1)
  - LABORATORY TEST ABNORMAL [None]
